FAERS Safety Report 9856830 (Version 2)
Quarter: 2014Q1

REPORT INFORMATION
  Report Type: Spontaneous
  Country: US (occurrence: US)
  Receive Date: 20140130
  Receipt Date: 20140130
  Transmission Date: 20141002
  Serious: Yes (Hospitalization)
  Sender: FDA-Public Use
  Company Number: US-ABBVIE-13P-163-1097077-00

PATIENT
  Age: 12 Year
  Sex: Male
  Weight: 69.92 kg

DRUGS (14)
  1. DEPAKOTE ER [Suspect]
     Indication: AFFECTIVE DISORDER
     Route: 048
     Dates: start: 20120301, end: 201303
  2. DEPAKOTE ER [Suspect]
     Route: 048
     Dates: start: 201303
  3. DEPAKOTE ER [Suspect]
     Route: 048
     Dates: start: 20130621
  4. MENINGOCOCCAL GROUP B RLP2086 [Suspect]
     Indication: IMMUNISATION
     Dosage: CODE NOT BROKEN (BLINDED)
     Dates: start: 20121009, end: 20121009
  5. MENINGOCOCCAL GROUP B RLP2086 [Suspect]
     Dates: start: 20121207, end: 20121207
  6. MENINGOCOCCAL GROUP B RLP2086 [Suspect]
     Dates: start: 20130409, end: 20130409
  7. PROZAC [Suspect]
     Indication: AFFECTIVE DISORDER
     Route: 048
     Dates: start: 20121108
  8. VYVANSE [Suspect]
     Indication: ATTENTION DEFICIT/HYPERACTIVITY DISORDER
     Dosage: EVERY MORNING
     Route: 048
     Dates: start: 20130123, end: 201303
  9. VYVANSE [Suspect]
     Dosage: 40 MG EVERY MORNING AND 20 MG EVERY NOON
     Route: 048
     Dates: start: 20130321, end: 20130924
  10. DESYREL [Suspect]
     Indication: AFFECTIVE DISORDER
     Dosage: NIGHTLY
     Route: 048
     Dates: start: 20130617
  11. DESYREL [Suspect]
     Indication: SLEEP DISORDER
  12. CATAPRES [Suspect]
     Indication: AFFECTIVE DISORDER
     Dosage: NIGHTLY
     Route: 048
     Dates: start: 20120301
  13. THORAZINE [Suspect]
     Indication: AFFECTIVE DISORDER
     Route: 048
     Dates: start: 20130326
  14. THORAZINE [Suspect]
     Route: 048
     Dates: start: 20130617

REACTIONS (10)
  - Affective disorder [Recovered/Resolved]
  - Affective disorder [Recovered/Resolved]
  - Agitation [Not Recovered/Not Resolved]
  - Aggression [Recovered/Resolved]
  - Suicidal ideation [Unknown]
  - Treatment noncompliance [Unknown]
  - Hospitalisation [Unknown]
  - Aggression [Not Recovered/Not Resolved]
  - Aggression [Not Recovered/Not Resolved]
  - Sleep disorder [Unknown]
